FAERS Safety Report 14315055 (Version 1)
Quarter: 2017Q4

REPORT INFORMATION
  Report Type: Spontaneous
  Country: SE (occurrence: SE)
  Receive Date: 20171221
  Receipt Date: 20171221
  Transmission Date: 20180321
  Serious: Yes (Other)
  Sender: FDA-Public Use
  Company Number: SE-TEVA-2017-SE-832549

PATIENT
  Sex: Female

DRUGS (1)
  1. SERTRALINE ACTAVIS [Suspect]
     Active Substance: SERTRALINE HYDROCHLORIDE
     Indication: DEPRESSION
     Route: 048

REACTIONS (6)
  - Compartment syndrome [Unknown]
  - Water intoxication [Unknown]
  - Anxiety [Unknown]
  - Hyperhidrosis [Unknown]
  - Muscle spasms [Unknown]
  - Thirst [Unknown]
